FAERS Safety Report 7783532-8 (Version None)
Quarter: 2011Q3

REPORT INFORMATION
  Report Type: 
  Country: None (occurrence: None)
  Receive Date: 20110928
  Receipt Date: 20110921
  Transmission Date: 20111222
  Serious: Yes (Death)
  Sender: FDA-Public Use
  Company Number: US-AMGEN-QUU413200

PATIENT
  Age: 59 Year
  Sex: Male
  Weight: 86.3 kg

DRUGS (4)
  1. CORTICOSTEROID NOS [Concomitant]
     Dosage: UNK UNK, UNK
     Dates: start: 20100301
  2. RITUXIMAB [Concomitant]
     Dosage: UNK UNK, QWK
     Dates: start: 20100419
  3. DANAZOL [Concomitant]
     Dosage: UNK UNK, UNK
     Dates: start: 20100201
  4. NPLATE [Suspect]
     Indication: IDIOPATHIC THROMBOCYTOPENIC PURPURA
     Dosage: 2 MUG/KG, UNK
     Route: 058
     Dates: start: 20100430, end: 20100430

REACTIONS (5)
  - MYELODYSPLASTIC SYNDROME [None]
  - CHRONIC LYMPHOCYTIC LEUKAEMIA [None]
  - MYELOID LEUKAEMIA [None]
  - RENAL FAILURE ACUTE [None]
  - NON-HODGKIN'S LYMPHOMA [None]
